FAERS Safety Report 4666291-7 (Version None)
Quarter: 2005Q2

REPORT INFORMATION
  Report Type: 
  Country: None (occurrence: None)
  Receive Date: 20050518
  Receipt Date: 20050504
  Transmission Date: 20051028
  Serious: Yes (Disabling, Other)
  Sender: FDA-Public Use
  Company Number: S05-UKI-01727-01

PATIENT
  Age: 25 Year
  Sex: Female

DRUGS (5)
  1. CIPRALEX                (ESCITALOPRAM) [Suspect]
     Indication: DEPRESSION
     Dosage: 10 MG QD PO
     Route: 048
     Dates: start: 20050410
  2. ABILIFY                              (ARIPIRAZOLE) [Suspect]
     Indication: PSYCHOTIC DISORDER
     Dosage: 15 MG QD PO
     Route: 048
     Dates: start: 20050316, end: 20050101
  3. ABILIFY                 (ARIPIRAZOLE) [Suspect]
     Indication: PSYCHOTIC DISORDER
     Dosage: 10 MG QD PO
     Route: 048
  4. AMISULPRIDE               (AMISULPRIDE) [Concomitant]
  5. ORAL CONTRACEPTIVES  UNSPECIFIED [Concomitant]
     Route: 048

REACTIONS (4)
  - DRUG INTERACTION [None]
  - MOVEMENT DISORDER [None]
  - MUSCLE RIGIDITY [None]
  - TREMOR [None]
